FAERS Safety Report 6443009-9 (Version None)
Quarter: 2009Q4

REPORT INFORMATION
  Report Type: 
  Country: None (occurrence: None)
  Receive Date: 20091117
  Receipt Date: 20081111
  Transmission Date: 20100525
  Serious: No
  Sender: FDA-Public Use
  Company Number: US-ABBOTT-08P-163-0491253-00

PATIENT
  Sex: Male

DRUGS (1)
  1. TEVETEN HCT [Suspect]
     Indication: BIPOLAR DISORDER
     Route: 048

REACTIONS (1)
  - MANIA [None]
